FAERS Safety Report 8981421 (Version 2)
Quarter: 2013Q1

REPORT INFORMATION
  Report Type: Spontaneous
  Country: US (occurrence: US)
  Receive Date: 20121221
  Receipt Date: 20130118
  Transmission Date: 20140127
  Serious: No
  Sender: FDA-Public Use
  Company Number: US-PFIZER INC-2012322457

PATIENT
  Age: 49 Year
  Sex: Female

DRUGS (2)
  1. NITROSTAT [Suspect]
     Indication: CHEST PAIN
     Dosage: 0.4 MG, (EVERY 5 MIN WHEN NEEDED)
     Route: 060
  2. LIPITOR [Concomitant]
     Dosage: 40 MG, 1X/DAY
     Route: 048
     Dates: start: 20100105

REACTIONS (3)
  - Headache [Recovered/Resolved]
  - Paraesthesia oral [Recovered/Resolved]
  - Drug ineffective [Unknown]
